FAERS Safety Report 7080016-X (Version None)
Quarter: 2010Q4

REPORT INFORMATION
  Report Type: 
  Country: None (occurrence: None)
  Receive Date: 20101102
  Receipt Date: 20100210
  Transmission Date: 20110411
  Serious: No
  Sender: FDA-Public Use
  Company Number: US-ABBOTT-10P-163-0625443-00

PATIENT
  Sex: Female
  Weight: 134.84 kg

DRUGS (23)
  1. BIAXIN [Suspect]
     Indication: PRODUCT USED FOR UNKNOWN INDICATION
  2. VIVAGLOBIN [Suspect]
     Indication: PROPHYLAXIS
     Dosage: (78ML,78ML)(12.5 GRAMS) VIA 4-6 SITES
     Route: 058
     Dates: start: 20070329, end: 20091019
  3. VIVAGLOBIN [Suspect]
     Dosage: (80ML, 78ML) (12.5 GRAMS) VIA 4-6 SITES
     Route: 058
     Dates: start: 20090319
  4. CALCITRIOL [Concomitant]
     Indication: PRODUCT USED FOR UNKNOWN INDICATION
  5. CARAFATE [Concomitant]
     Indication: PRODUCT USED FOR UNKNOWN INDICATION
     Dosage: AS REQUIRED
  6. EPIPEN [Concomitant]
     Indication: HYPERSENSITIVITY
     Dosage: 0.3MG/0.3ML AS DIRECTED
     Dates: start: 20070313
  7. FLORA Q CAPSULE 8 BILLIONCELL [Concomitant]
     Indication: PRODUCT USED FOR UNKNOWN INDICATION
     Dosage: AS REQUIRED
  8. GLUCOPHAGE [Concomitant]
     Indication: PRODUCT USED FOR UNKNOWN INDICATION
     Dosage: 4 (500) TABLETS EVERY DAY
  9. LANTUS [Concomitant]
     Indication: PRODUCT USED FOR UNKNOWN INDICATION
     Dosage: 8 UNITS IN THE AM 10-11 UNITS IN THE PM
  10. LASIX [Concomitant]
     Indication: PRODUCT USED FOR UNKNOWN INDICATION
  11. MAXAIR [Concomitant]
     Indication: ASTHMA
     Dosage: AUTOHALER PUFFS AS REQUIRED
     Route: 055
     Dates: start: 20091013
  12. POTASSIUM CHLORIDE SUSTAINED RELEASE [Concomitant]
     Indication: PRODUCT USED FOR UNKNOWN INDICATION
     Route: 048
  13. PREVACID DELAYED RELEASE [Concomitant]
     Indication: PRODUCT USED FOR UNKNOWN INDICATION
  14. SINGULAIR [Concomitant]
     Indication: PRODUCT USED FOR UNKNOWN INDICATION
  15. SYNTHROID [Concomitant]
     Indication: PRODUCT USED FOR UNKNOWN INDICATION
  16. VALTREX [Concomitant]
     Indication: PRODUCT USED FOR UNKNOWN INDICATION
  17. ACTOS [Concomitant]
     Indication: PRODUCT USED FOR UNKNOWN INDICATION
  18. ALLEGRA [Concomitant]
     Indication: PRODUCT USED FOR UNKNOWN INDICATION
  19. BION TEARS [Concomitant]
     Indication: PRODUCT USED FOR UNKNOWN INDICATION
     Dosage: 0.1-0.3%
  20. AUGMENTIN '125' [Concomitant]
     Indication: PRODUCT USED FOR UNKNOWN INDICATION
     Dosage: 875-125 MG
     Dates: start: 20091023
  21. BYETTA [Concomitant]
     Indication: DIABETES MELLITUS
     Dosage: 10MCG/0.04ML
     Dates: start: 20070809
  22. COZAAR [Concomitant]
     Indication: PRODUCT USED FOR UNKNOWN INDICATION
     Dosage: EVERY MORNING
  23. METANX [Concomitant]
     Indication: PRODUCT USED FOR UNKNOWN INDICATION

REACTIONS (3)
  - MALABSORPTION [None]
  - OESOPHAGEAL SPASM [None]
  - VITAMIN D DEFICIENCY [None]
